FAERS Safety Report 6095389-4 (Version None)
Quarter: 2009Q1

REPORT INFORMATION
  Report Type: 
  Country: None (occurrence: None)
  Receive Date: 20090227
  Receipt Date: 20080401
  Transmission Date: 20090719
  Serious: No
  Sender: FDA-Public Use
  Company Number: A0716794A

PATIENT
  Age: 48 Year
  Sex: Female
  Weight: 63.6 kg

DRUGS (3)
  1. LAMICTAL [Suspect]
     Indication: DEPRESSION
     Dosage: 125MG PER DAY
     Route: 048
     Dates: start: 20070913, end: 20080210
  2. RITALIN [Concomitant]
  3. DOXEPIN HCL [Concomitant]

REACTIONS (2)
  - BLISTER [None]
  - MUCOSAL EROSION [None]
